FAERS Safety Report 5171493-X (Version None)
Quarter: 2006Q4

REPORT INFORMATION
  Report Type: 
  Country: None (occurrence: None)
  Receive Date: 20061213
  Receipt Date: 20060906
  Transmission Date: 20070319
  Serious: Yes (Other)
  Sender: FDA-Public Use
  Company Number: US-AMGEN-STX192505

PATIENT
  Sex: Female
  Weight: 82.7 kg

DRUGS (16)
  1. ENBREL [Suspect]
     Indication: RHEUMATOID ARTHRITIS
     Dates: start: 20001227, end: 20060801
  2. METHOTREXATE [Concomitant]
     Indication: RHEUMATOID ARTHRITIS
  3. AMARYL [Concomitant]
  4. AVANDIA [Concomitant]
  5. VYTORIN [Concomitant]
  6. FUROSEMIDE [Concomitant]
  7. LEVOXYL [Concomitant]
  8. COREG [Concomitant]
  9. ACCUPRIL [Concomitant]
  10. ACIPHEX [Concomitant]
  11. SPIRONOLACTONE [Concomitant]
  12. NITROSTAT [Concomitant]
     Route: 060
  13. CALTRATE 600 [Concomitant]
  14. FOLIC ACID [Concomitant]
  15. VITAMIN E [Concomitant]
  16. CENTRUM SILVER [Concomitant]

REACTIONS (5)
  - CONDITION AGGRAVATED [None]
  - DRY MOUTH [None]
  - RHEUMATOID ARTHRITIS [None]
  - SJOGREN'S SYNDROME [None]
  - TONSIL CANCER [None]
